FAERS Safety Report 7588172-1 (Version None)
Quarter: 2011Q3

REPORT INFORMATION
  Report Type: 
  Country: None (occurrence: None)
  Receive Date: 20110705
  Receipt Date: 20110617
  Transmission Date: 20111222
  Serious: Yes (Life-Threatening, Hospitalization, Other)
  Sender: FDA-Public Use
  Company Number: US-BAYER-201040894NA

PATIENT
  Age: 23 Year
  Sex: Female
  Weight: 73 kg

DRUGS (14)
  1. FRAGMIN [Concomitant]
     Dosage: UNK
     Dates: start: 20081001, end: 20081101
  2. IBUPROFEN [Concomitant]
  3. MICROGESTIN 1.5/30 [Concomitant]
  4. IMITREX [Concomitant]
     Dosage: UNK
     Dates: start: 20080101
  5. ANTIBIOTICS [Concomitant]
  6. WARFARIN SODIUM [Concomitant]
     Dosage: UNK
     Dates: start: 20081001, end: 20081101
  7. HEPARIN [Concomitant]
     Dosage: UNK
     Dates: start: 20081001, end: 20081101
  8. NORETHINDRONE [Concomitant]
  9. ZOLOFT [Concomitant]
  10. SPIRONOLACTONE [Concomitant]
     Dosage: 50 MG, BID
     Dates: start: 20080902
  11. YAZ [Suspect]
     Indication: CONTRACEPTION
     Dosage: UNK
     Dates: start: 20080601, end: 20090101
  12. COUMADIN [Concomitant]
     Dosage: UNK
     Dates: start: 20081001, end: 20081101
  13. LOVENOX [Concomitant]
     Dosage: UNK
     Dates: start: 20081001, end: 20081101
  14. ASCORBIC ACID [Concomitant]

REACTIONS (6)
  - PAIN [None]
  - GALLBLADDER DISORDER [None]
  - FATIGUE [None]
  - PANCREATITIS ACUTE [None]
  - CHOLECYSTITIS CHRONIC [None]
  - BILIARY DYSKINESIA [None]
